FAERS Safety Report 8896126 (Version 2)
Quarter: 2012Q4

REPORT INFORMATION
  Report Type: 
  Country: NL (occurrence: NL)
  Receive Date: 20121108
  Receipt Date: 20121210
  Transmission Date: 20130627
  Serious: Yes (Other)
  Sender: FDA-Public Use
  Company Number: PHHY2012NL102116

PATIENT
  Sex: Male

DRUGS (3)
  1. ZOMETA [Suspect]
     Indication: PROSTATE CANCER METASTATIC
     Dosage: 4 mg/100 ml per 21 days
  2. ZOMETA [Suspect]
     Dosage: 4 mg/100 ml per 21 days
     Dates: start: 20120612
  3. ZOMETA [Suspect]
     Dosage: 4 mg/100 ml per 21 days
     Dates: start: 20120924

REACTIONS (1)
  - Terminal state [Unknown]
